FAERS Safety Report 13374166 (Version 2)
Quarter: 2017Q2

REPORT INFORMATION
  Report Type: Spontaneous
  Country: US (occurrence: US)
  Receive Date: 20170327
  Receipt Date: 20170412
  Transmission Date: 20170830
  Serious: No
  Sender: FDA-Public Use
  Company Number: US-BAYER-2017-057652

PATIENT
  Age: 77 Year
  Sex: Female
  Weight: 54 kg

DRUGS (3)
  1. CLARITIN [Suspect]
     Active Substance: LORATADINE
     Indication: HYPERSENSITIVITY
     Dosage: 1 DF, OM (1 TABLET EVERY MORNING AFTER BREAKFAST)
     Route: 048
  2. VITAMIN B NOS [Concomitant]
     Active Substance: VITAMIN B
  3. CLARITIN [Suspect]
     Active Substance: LORATADINE
     Indication: VIRAL UPPER RESPIRATORY TRACT INFECTION

REACTIONS (2)
  - Product packaging issue [None]
  - Skin discolouration [Unknown]
